FAERS Safety Report 24549505 (Version 2)
Quarter: 2024Q4

REPORT INFORMATION
  Report Type: Spontaneous
  Country: GB (occurrence: GB)
  Receive Date: 20241025
  Receipt Date: 20241105
  Transmission Date: 20250114
  Serious: Yes (Death, Hospitalization)
  Sender: MYLAN
  Company Number: GB-MYLANLABS-2024M1097223

PATIENT
  Sex: Male

DRUGS (1)
  1. CLOZARIL [Suspect]
     Active Substance: CLOZAPINE
     Indication: Schizophrenia
     Dosage: UNK
     Route: 048
     Dates: start: 20130626

REACTIONS (3)
  - Pulmonary embolism [Fatal]
  - Thermal burn [Unknown]
  - Fall [Unknown]
